FAERS Safety Report 4916587-6 (Version None)
Quarter: 2006Q1

REPORT INFORMATION
  Report Type: 
  Country: None (occurrence: None)
  Receive Date: 20060220
  Receipt Date: 20041008
  Transmission Date: 20060701
  Serious: Yes (Hospitalization)
  Sender: FDA-Public Use
  Company Number: FR-GLAXOSMITHKLINE-B0347642A

PATIENT
  Age: 85 Year
  Sex: Male

DRUGS (6)
  1. DEROXAT [Suspect]
     Indication: DRUG USE FOR UNKNOWN INDICATION
     Dosage: 20MG PER DAY
     Route: 048
     Dates: start: 20040822
  2. PREVISCAN [Suspect]
     Dosage: 1UNIT PER DAY
     Route: 048
     Dates: start: 20040819
  3. MODURETIC 5-50 [Concomitant]
     Route: 048
  4. SPECIAFOLDINE [Concomitant]
     Dosage: 5MG UNKNOWN
     Route: 048
  5. VANCOMYCIN [Concomitant]
     Dosage: 2G PER DAY
     Route: 042
  6. ICAZ [Concomitant]
     Route: 048

REACTIONS (6)
  - ANAEMIA [None]
  - DRUG INTERACTION [None]
  - INTERNATIONAL NORMALISED RATIO INCREASED [None]
  - PROTHROMBIN LEVEL DECREASED [None]
  - PROTHROMBIN TIME PROLONGED [None]
  - UPPER GASTROINTESTINAL HAEMORRHAGE [None]
